FAERS Safety Report 5571034-9 (Version None)
Quarter: 2007Q4

REPORT INFORMATION
  Report Type: 
  Country: None (occurrence: None)
  Receive Date: 20071221
  Receipt Date: 20071211
  Transmission Date: 20080405
  Serious: Yes (Hospitalization)
  Sender: FDA-Public Use
  Company Number: US-AVENTIS-200718631US

PATIENT
  Age: 65 Year
  Sex: Male

DRUGS (7)
  1. LANTUS [Suspect]
     Dosage: DOSE: 20 U IN AM
  2. NOVOLOG [Concomitant]
     Dosage: DOSE: UNK
  3. PROTONIX [Concomitant]
     Dosage: DOSE: UNK
  4. ASPIRIN [Concomitant]
     Dosage: DOSE: UNK
  5. NEORAL [Concomitant]
     Dosage: DOSE: UNK
  6. PREDNISONE [Concomitant]
  7. PREDNISONE [Concomitant]

REACTIONS (4)
  - BLOOD GLUCOSE DECREASED [None]
  - BLOOD GLUCOSE INCREASED [None]
  - MEDICATION ERROR [None]
  - RENAL IMPAIRMENT [None]
